FAERS Safety Report 10896729 (Version 1)
Quarter: 2015Q1

REPORT INFORMATION
  Report Type: Spontaneous
  Country: US (occurrence: US)
  Receive Date: 20150309
  Receipt Date: 20150309
  Transmission Date: 20150721
  Serious: No
  Sender: FDA-Public Use
  Company Number: US-ASTRAZENECA-2015SE19405

PATIENT
  Sex: Male
  Weight: 90.7 kg

DRUGS (3)
  1. CRESTOR [Suspect]
     Active Substance: ROSUVASTATIN CALCIUM
     Indication: BLOOD CHOLESTEROL
     Route: 048
  2. BABY ASPIRIN [Concomitant]
     Active Substance: ASPIRIN
  3. ANAZOL [Concomitant]
     Indication: CARDIAC DISORDER

REACTIONS (2)
  - Hypoacusis [Unknown]
  - Drug dose omission [Unknown]
